FAERS Safety Report 16363012 (Version 1)
Quarter: 2019Q2

REPORT INFORMATION
  Report Type: Spontaneous
  Country: US (occurrence: US)
  Receive Date: 20190528
  Receipt Date: 20190528
  Transmission Date: 20190711
  Serious: No
  Sender: FDA-Public Use
  Company Number: US-BAYER-2019-099368

PATIENT
  Age: 90 Year
  Sex: Male
  Weight: 82 kg

DRUGS (8)
  1. TYLENOL [Concomitant]
     Active Substance: ACETAMINOPHEN
  2. ALEVE [Suspect]
     Active Substance: NAPROXEN SODIUM
     Indication: PAIN
     Dosage: 1 DF, BID
     Route: 048
     Dates: start: 20190516, end: 20190519
  3. KRILL OIL [Concomitant]
     Active Substance: DIETARY SUPPLEMENT
  4. OMEGA 3 [DOCOSAHEXAENOIC ACID;EICOSAPENTAENOIC ACID] [Concomitant]
  5. AVODART [Concomitant]
     Active Substance: DUTASTERIDE
  6. LUPRON [Concomitant]
     Active Substance: LEUPROLIDE ACETATE
  7. BAYER LOW DOSE [Suspect]
     Active Substance: ASPIRIN
     Route: 048
  8. ZOMETA [Concomitant]
     Active Substance: ZOLEDRONIC ACID

REACTIONS (4)
  - Balance disorder [Recovered/Resolved]
  - Drug ineffective [Unknown]
  - Blood testosterone decreased [Not Recovered/Not Resolved]
  - Incorrect product administration duration [Unknown]
